FAERS Safety Report 9006390 (Version 1)
Quarter: 2013Q1

REPORT INFORMATION
  Report Type: Spontaneous
  Country: US (occurrence: US)
  Receive Date: 20130110
  Receipt Date: 20130110
  Transmission Date: 20140127
  Serious: Yes (Other)
  Sender: FDA-Public Use
  Company Number: US-009507513-0909USA03431

PATIENT
  Age: 6 Year
  Sex: Male
  Weight: 27.22 kg

DRUGS (1)
  1. SINGULAIR [Suspect]
     Indication: SEASONAL ALLERGY
     Dosage: 5 MG, QD
     Route: 048
     Dates: start: 20081001, end: 20090315

REACTIONS (5)
  - Suicidal ideation [Unknown]
  - Mood swings [Unknown]
  - Nervousness [Unknown]
  - Social avoidant behaviour [Unknown]
  - Headache [Unknown]
